FAERS Safety Report 16442232 (Version 1)
Quarter: 2019Q2

REPORT INFORMATION
  Report Type: Report from Study
  Country: None (occurrence: US)
  Receive Date: 20190617
  Receipt Date: 20190617
  Transmission Date: 20190711
  Serious: No
  Sender: FDA-Public Use
  Company Number: US-US WORLDMEDS, LLC-USW201902-000338

PATIENT
  Sex: Male

DRUGS (11)
  1. METFORMIN [Concomitant]
     Active Substance: METFORMIN HYDROCHLORIDE
     Dosage: LAST 5 YEARS
  2. NORVASC [Concomitant]
     Active Substance: AMLODIPINE BESYLATE
     Dosage: FOR THE LAST 5 YEARS
  3. PAXIL [Concomitant]
     Active Substance: PAROXETINE HYDROCHLORIDE
     Dates: start: 2003
  4. SINEMET [Concomitant]
     Active Substance: CARBIDOPA\LEVODOPA
     Route: 048
     Dates: start: 2015
  5. SINEMET [Concomitant]
     Active Substance: CARBIDOPA\LEVODOPA
     Dosage: SINEMET CR
     Route: 048
  6. NEXIUM [Concomitant]
     Active Substance: ESOMEPRAZOLE MAGNESIUM
     Dates: start: 2007
  7. HYDROXYZINE [Concomitant]
     Active Substance: HYDROXYZINE HYDROCHLORIDE
     Dates: start: 201810
  8. SINEMET [Concomitant]
     Active Substance: CARBIDOPA\LEVODOPA
     Dosage: TWO TABLETS IN THE MORNING, TWO IN THE AFTERNOON, AND ONCE AT NIGHT
     Route: 048
     Dates: start: 201901, end: 20190201
  9. NEURONTIN [Concomitant]
     Active Substance: GABAPENTIN
     Dosage: MORNING, AFTERNOON, NIGHT, ) OVER 6 YEARS
  10. APOKYN [Suspect]
     Active Substance: APOMORPHINE HYDROCHLORIDE
     Indication: PRODUCT USED FOR UNKNOWN INDICATION
     Dosage: 3ML CARTRIDGE 1 EA CART
     Route: 058
     Dates: start: 201812, end: 2019
  11. VITAMIN D [Concomitant]
     Active Substance: VITAMIN D NOS
     Dates: start: 201901

REACTIONS (1)
  - Tremor [Unknown]
